FAERS Safety Report 8622595-4 (Version None)
Quarter: 2012Q3

REPORT INFORMATION
  Report Type: 
  Country: None (occurrence: None)
  Receive Date: 20120827
  Receipt Date: 20120820
  Transmission Date: 20120928
  Serious: Yes (Other)
  Sender: FDA-Public Use
  Company Number: GB-ACCORD-014491

PATIENT
  Age: 61 Year
  Sex: Female
  Weight: 78.46 kg

DRUGS (6)
  1. PERINDOPRIL ERBUMINE [Suspect]
  2. ATORVASTATIN [Suspect]
     Route: 048
     Dates: start: 20120710, end: 20120731
  3. AMLODIPINE [Suspect]
  4. DIPYRIDAMOLE [Suspect]
  5. ASPIRIN [Suspect]
  6. SIMVASTATIN [Suspect]
     Route: 048
     Dates: start: 20120310

REACTIONS (3)
  - RENAL DISORDER [None]
  - ABDOMINAL PAIN [None]
  - MYALGIA [None]
